FAERS Safety Report 7294508-1 (Version None)
Quarter: 2011Q1

REPORT INFORMATION
  Report Type: 
  Country: None (occurrence: None)
  Receive Date: 20110216
  Receipt Date: 20110207
  Transmission Date: 20110831
  Serious: Yes (Hospitalization)
  Sender: FDA-Public Use
  Company Number: US-BIOGENIDEC-2010BI034836

PATIENT
  Age: 34 Year
  Sex: Female
  Weight: 52 kg

DRUGS (5)
  1. XANAX [Concomitant]
     Indication: ANXIETY
  2. KLONOPIN [Concomitant]
     Dates: start: 20090101
  3. TYSABRI [Suspect]
     Indication: MULTIPLE SCLEROSIS
     Route: 042
     Dates: start: 20100819
  4. KLONOPIN [Concomitant]
     Indication: TREMOR
     Dates: start: 20090101
  5. VITAMIN D [Concomitant]
     Indication: VITAMIN D DECREASED

REACTIONS (2)
  - MULTIPLE SCLEROSIS RELAPSE [None]
  - URINARY TRACT INFECTION [None]
